FAERS Safety Report 20346980 (Version 1)
Quarter: 2022Q1

REPORT INFORMATION
  Report Type: Spontaneous
  Country: JP (occurrence: None)
  Receive Date: 20220118
  Receipt Date: 20220118
  Transmission Date: 20220423
  Serious: Yes (Other)
  Sender: FDA-Public Use
  Company Number: 2022A020143

PATIENT
  Age: 81 Year
  Sex: Male

DRUGS (1)
  1. IMFINZI [Suspect]
     Active Substance: DURVALUMAB
     Indication: Non-small cell lung cancer
     Route: 042

REACTIONS (4)
  - Radiation pneumonitis [Unknown]
  - Haematuria [Unknown]
  - Haemoptysis [Unknown]
  - Pulmonary alveolar haemorrhage [Unknown]
